FAERS Safety Report 5275636-9 (Version None)
Quarter: 2007Q1

REPORT INFORMATION
  Report Type: 
  Country: None (occurrence: None)
  Receive Date: 20070326
  Receipt Date: 20070314
  Transmission Date: 20070707
  Serious: Yes (Other)
  Sender: FDA-Public Use
  Company Number: JP-SANOFI-SYNTHELABO-A01200702910

PATIENT
  Age: 56 Year
  Sex: Male

DRUGS (3)
  1. WYTENS [Concomitant]
     Dosage: 2 MG
     Route: 048
  2. DIOVAN [Concomitant]
     Dosage: 80 MG
     Route: 048
     Dates: start: 20030107
  3. MYSLEE [Suspect]
     Indication: INSOMNIA
     Dosage: 10 MG
     Route: 048
     Dates: start: 20030802, end: 20060919

REACTIONS (4)
  - AMNESIA [None]
  - DELIRIUM [None]
  - MEMORY IMPAIRMENT [None]
  - ROAD TRAFFIC ACCIDENT [None]
